FAERS Safety Report 6193956-0 (Version None)
Quarter: 2009Q2

REPORT INFORMATION
  Report Type: 
  Country: None (occurrence: None)
  Receive Date: 20090518
  Receipt Date: 20090506
  Transmission Date: 20091009
  Serious: Yes (Other)
  Sender: FDA-Public Use
  Company Number: US-PFIZER INC-2009209875

PATIENT
  Sex: Female
  Weight: 76.2 kg

DRUGS (3)
  1. NIFEDIPINE [Suspect]
     Indication: HYPERTENSION
     Dosage: 90 MG, 1X/DAY
     Dates: start: 20081209
  2. NIFEDIPINE [Suspect]
     Dosage: 90 MG, 1X/DAY
     Dates: start: 20090107
  3. ATIVAN [Concomitant]
     Indication: PANIC ATTACK
     Dosage: UNK

REACTIONS (4)
  - HAEMATEMESIS [None]
  - OESOPHAGEAL PAIN [None]
  - PRODUCT SOLUBILITY ABNORMAL [None]
  - VOMITING [None]
